FAERS Safety Report 9464448 (Version 2)
Quarter: 2013Q4

REPORT INFORMATION
  Report Type: Spontaneous
  Country: US (occurrence: US)
  Receive Date: 20130819
  Receipt Date: 20131010
  Transmission Date: 20140711
  Serious: No
  Sender: FDA-Public Use
  Company Number: US-PFIZER INC-2013239047

PATIENT
  Age: 47 Year
  Sex: Female
  Weight: 83.45 kg

DRUGS (4)
  1. NEURONTIN [Suspect]
     Indication: BACK PAIN
     Dosage: 300MG ORAL CAPSULE ONE IN MORNING, ONE IN EVENING AND TWO AT NIGHT
     Route: 048
     Dates: start: 201304
  2. NEURONTIN [Suspect]
     Indication: PAIN IN EXTREMITY
  3. LORTAB [Concomitant]
     Indication: PAIN
     Dosage: 7.5/500 MG, 4X/DAY
  4. TIZANIDINE [Concomitant]
     Dosage: 4 MG, 1X/DAY
     Route: 048

REACTIONS (4)
  - Off label use [Unknown]
  - Hypertension [Unknown]
  - Eye pain [Unknown]
  - Headache [Unknown]
